FAERS Safety Report 17431165 (Version 1)
Quarter: 2020Q1

REPORT INFORMATION
  Report Type: Spontaneous
  Country: US (occurrence: US)
  Receive Date: 20200217
  Receipt Date: 20200217
  Transmission Date: 20200409
  Serious: Yes (Hospitalization)
  Sender: FDA-Public Use
  Company Number: None

PATIENT
  Age: 64 Year
  Sex: Male

DRUGS (7)
  1. ROPINIROLE. [Concomitant]
     Active Substance: ROPINIROLE
  2. ASPIRIN. [Concomitant]
     Active Substance: ASPIRIN
  3. LISNOPRIL [Concomitant]
  4. GLATIRAMER [Suspect]
     Active Substance: GLATIRAMER
     Indication: MULTIPLE SCLEROSIS
     Dosage: ?          OTHER FREQUENCY:3 TIMES PER WEEK;?
     Route: 058
     Dates: start: 20191219
  5. ATORVASTATIN [Concomitant]
     Active Substance: ATORVASTATIN
  6. DIAZEPAM. [Concomitant]
     Active Substance: DIAZEPAM
  7. METOPROLOL. [Concomitant]
     Active Substance: METOPROLOL

REACTIONS (2)
  - Device malfunction [None]
  - Muscle spasms [None]

NARRATIVE: CASE EVENT DATE: 20200201
